FAERS Safety Report 5575110-6 (Version None)
Quarter: 2007Q4

REPORT INFORMATION
  Report Type: 
  Country: None (occurrence: None)
  Receive Date: 20071227
  Receipt Date: 20070626
  Transmission Date: 20080405
  Serious: Yes (Other)
  Sender: FDA-Public Use
  Company Number: US-RANBAXY-2007US-08248

PATIENT

DRUGS (2)
  1. ISOTRETINOIN [Suspect]
     Indication: ACNE
     Dosage: 20 MG, UNK
     Route: 048
     Dates: start: 20060104, end: 20070401
  2. ISOTRETINOIN [Suspect]
     Dosage: 20 MG, UNK
     Route: 048
     Dates: start: 20070323, end: 20070401

REACTIONS (1)
  - TRANSIENT ISCHAEMIC ATTACK [None]
